FAERS Safety Report 21363093 (Version 1)
Quarter: 2022Q3

REPORT INFORMATION
  Report Type: Spontaneous
  Country: US (occurrence: None)
  Receive Date: 20220921
  Receipt Date: 20220921
  Transmission Date: 20221027
  Serious: No
  Sender: FDA-Public Use
  Company Number: None

PATIENT
  Age: 75 Year
  Sex: Male
  Weight: 100.97 kg

DRUGS (17)
  1. ABIRATERONE [Suspect]
     Active Substance: ABIRATERONE
     Indication: Iron deficiency anaemia
     Dosage: FREQUENCY : DAILY;?
     Route: 048
  2. ACETAMINOPHEN [Concomitant]
     Active Substance: ACETAMINOPHEN
  3. ALLOPURINOL [Concomitant]
     Active Substance: ALLOPURINOL
  4. AMLODIPINE [Concomitant]
     Active Substance: AMLODIPINE BESYLATE
  5. ASPIRIN [Concomitant]
     Active Substance: ASPIRIN
  6. ATORVASTATIN [Concomitant]
     Active Substance: ATORVASTATIN
  7. BENICAR [Concomitant]
     Active Substance: OLMESARTAN MEDOXOMIL
  8. CELECOXIB [Concomitant]
     Active Substance: CELECOXIB
  9. JANUVIA [Concomitant]
     Active Substance: SITAGLIPTIN PHOSPHATE
  10. LUPRON [Concomitant]
     Active Substance: LEUPROLIDE ACETATE
  11. MUCINEX [Concomitant]
     Active Substance: GUAIFENESIN
  12. OLMESARTAN [Concomitant]
     Active Substance: OLMESARTAN
  13. Medoxomil-HCTZ [Concomitant]
  14. PANTOPRAZOLE SODIUM [Concomitant]
     Active Substance: PANTOPRAZOLE SODIUM
  15. PREDNISONE [Concomitant]
     Active Substance: PREDNISONE
  16. PROCHLORPERAZINE [Concomitant]
     Active Substance: PROCHLORPERAZINE
  17. VITAMIN C [Concomitant]
     Active Substance: ASCORBIC ACID

REACTIONS (2)
  - Blood potassium increased [None]
  - Cardiac disorder [None]
